FAERS Safety Report 6091196-7 (Version None)
Quarter: 2009Q1

REPORT INFORMATION
  Report Type: 
  Country: None (occurrence: None)
  Receive Date: 20090225
  Receipt Date: 20090223
  Transmission Date: 20090719
  Serious: Yes (Hospitalization)
  Sender: FDA-Public Use
  Company Number: US-BAYER-200839839NA

PATIENT
  Age: 22 Year
  Sex: Male

DRUGS (1)
  1. AVELOX [Suspect]
     Indication: PNEUMONIA
     Dosage: TOTAL DAILY DOSE: 400 MG  UNIT DOSE: 400 MG
     Route: 048
     Dates: start: 20081020, end: 20081001

REACTIONS (9)
  - ABDOMINAL PAIN [None]
  - ANAEMIA [None]
  - DIARRHOEA [None]
  - EMPYEMA [None]
  - HIATUS HERNIA [None]
  - LOBAR PNEUMONIA [None]
  - PELVIC FLUID COLLECTION [None]
  - RENAL FAILURE ACUTE [None]
  - VOMITING [None]
